FAERS Safety Report 16220141 (Version 1)
Quarter: 2019Q2

REPORT INFORMATION
  Report Type: Spontaneous
  Country: US (occurrence: US)
  Receive Date: 20190420
  Receipt Date: 20190420
  Transmission Date: 20190711
  Serious: No
  Sender: FDA-Public Use
  Company Number: US-009507513-1904USA008920

PATIENT
  Age: 77 Year
  Sex: Female

DRUGS (6)
  1. LOSARTAN. [Concomitant]
     Active Substance: LOSARTAN
  2. METFORMIN [Concomitant]
     Active Substance: METFORMIN HYDROCHLORIDE
  3. VALTREX [Concomitant]
     Active Substance: VALACYCLOVIR HYDROCHLORIDE
  4. METHOTREXATE. [Concomitant]
     Active Substance: METHOTREXATE
  5. BELSOMRA [Suspect]
     Active Substance: SUVOREXANT
     Indication: INSOMNIA
     Dosage: 10MG ONCE A DAY, THE PATIENT TOOK THREE TIMES
     Route: 048
  6. ELIQUIS [Concomitant]
     Active Substance: APIXABAN

REACTIONS (3)
  - Hangover [Recovered/Resolved]
  - Circumstance or information capable of leading to medication error [Unknown]
  - Therapeutic product effect increased [Recovered/Resolved]
